FAERS Safety Report 21853550 (Version 3)
Quarter: 2023Q4

REPORT INFORMATION
  Report Type: Report from Study
  Country: US (occurrence: US)
  Receive Date: 20230112
  Receipt Date: 20231106
  Transmission Date: 20240110
  Serious: Yes (Other)
  Sender: FDA-Public Use
  Company Number: US-TAKEDA-2022TUS064667

PATIENT
  Age: 63 Year
  Sex: Male

DRUGS (4)
  1. RECOMBINATE [Suspect]
     Active Substance: ANTIHEMOPHILIC FACTOR, HUMAN RECOMBINANT
     Indication: Haemorrhage
     Dosage: 2000 INTERNATIONAL UNIT
     Route: 042
  2. RECOMBINATE [Suspect]
     Active Substance: ANTIHEMOPHILIC FACTOR, HUMAN RECOMBINANT
     Dosage: 1930 INTERNATIONAL UNIT
     Route: 065
  3. RECOMBINATE [Suspect]
     Active Substance: ANTIHEMOPHILIC FACTOR, HUMAN RECOMBINANT
     Dosage: 2160 INTERNATIONAL UNIT, QD
     Route: 065
  4. RECOMBINATE [Suspect]
     Active Substance: ANTIHEMOPHILIC FACTOR, HUMAN RECOMBINANT
     Dosage: 2160 INTERNATIONAL UNIT
     Route: 042

REACTIONS (8)
  - Contusion [Unknown]
  - Haemarthrosis [Unknown]
  - Herpes zoster [Unknown]
  - Ocular hyperaemia [Unknown]
  - Oral pain [Unknown]
  - Glossodynia [Unknown]
  - Back pain [Unknown]
  - Poor venous access [Unknown]

NARRATIVE: CASE EVENT DATE: 20230105
